FAERS Safety Report 5867036-5 (Version None)
Quarter: 2008Q3

REPORT INFORMATION
  Report Type: 
  Country: None (occurrence: None)
  Receive Date: 20080902
  Receipt Date: 20080822
  Transmission Date: 20090109
  Serious: Yes (Hospitalization)
  Sender: FDA-Public Use
  Company Number: B0430538A

PATIENT
  Age: 65 Year
  Sex: Female
  Weight: 80 kg

DRUGS (8)
  1. DEROXAT [Suspect]
     Dosage: 30MG PER DAY
     Route: 048
     Dates: end: 20060101
  2. DEPAMIDE [Suspect]
     Dosage: 900MG PER DAY
     Route: 048
  3. TERCIAN [Suspect]
     Dosage: 37MG PER DAY
     Route: 048
  4. ZYPREXA [Suspect]
     Dosage: 10MG PER DAY
     Route: 048
  5. PARKINANE [Suspect]
     Dosage: 2MG PER DAY
     Route: 048
  6. CORTANCYL [Concomitant]
     Dosage: 10MG PER DAY
     Route: 048
  7. ESIDRIX [Concomitant]
     Dosage: 25MG PER DAY
     Route: 048
  8. DIFFU K [Concomitant]
     Dosage: 3UNIT PER DAY
     Route: 048

REACTIONS (4)
  - DRUG INTERACTION [None]
  - DYSKINESIA [None]
  - OEDEMA PERIPHERAL [None]
  - WEIGHT INCREASED [None]
